FAERS Safety Report 17303289 (Version 1)
Quarter: 2020Q1

REPORT INFORMATION
  Report Type: Spontaneous
  Country: JP (occurrence: JP)
  Receive Date: 20200122
  Receipt Date: 20200122
  Transmission Date: 20200409
  Serious: Yes (Other)
  Sender: FDA-Public Use
  Company Number: JP-BAYER-2020-011067

PATIENT
  Age: 45 Year
  Sex: Female
  Weight: 53.2 kg

DRUGS (1)
  1. MIRENA [Suspect]
     Active Substance: LEVONORGESTREL
     Dosage: 20 MCG/24HR, CONT
     Route: 015
     Dates: start: 20190710, end: 20191114

REACTIONS (7)
  - Device dislocation [None]
  - Metrorrhagia [None]
  - Vaginal discharge [Not Recovered/Not Resolved]
  - Device issue [None]
  - Menstruation irregular [None]
  - Contraindicated device used [None]
  - Vaginal infection [Not Recovered/Not Resolved]

NARRATIVE: CASE EVENT DATE: 20190914
